FAERS Safety Report 12463827 (Version 2)
Quarter: 2017Q1

REPORT INFORMATION
  Report Type: Spontaneous
  Country: US (occurrence: US)
  Receive Date: 20160614
  Receipt Date: 20170206
  Transmission Date: 20170428
  Serious: Yes (Hospitalization, Other)
  Sender: FDA-Public Use
  Company Number: US-TEVA-668442USA

PATIENT
  Age: 31 Year
  Sex: Male

DRUGS (5)
  1. GLUCOSE [Concomitant]
     Active Substance: DEXTROSE
     Dosage: DURING THIRD CYCLE
     Route: 065
  2. RIFAXIMIN [Concomitant]
     Active Substance: RIFAXIMIN
     Dosage: TWICE DAILY; DURING THE SECOND CYCLE
     Route: 065
  3. SODIUM CHLORIDE. [Concomitant]
     Active Substance: SODIUM CHLORIDE
     Dosage: DURING THIRD CYCLE
     Route: 065
  4. OXALIPLATIN INJECTION 50MG/10 MLAND100MG/20ML [Suspect]
     Active Substance: OXALIPLATIN
     Indication: HEPATOCELLULAR CARCINOMA
     Dosage: 100 MG/M^2 EVERY 2 WEEKS, RECEIVED 8 CYCLES
     Route: 065
  5. GEMCITABINE [Suspect]
     Active Substance: GEMCITABINE\GEMCITABINE HYDROCHLORIDE
     Indication: HEPATOCELLULAR CARCINOMA
     Dosage: 1000 MG/M^2 EVERY 2 WEEKS, RECEIVED 8 CYCLES
     Route: 065

REACTIONS (3)
  - Hypersensitivity [Unknown]
  - Hyperammonaemic encephalopathy [Recovered/Resolved]
  - Ornithine transcarbamoylase deficiency [Unknown]
